FAERS Safety Report 19561883 (Version 1)
Quarter: 2021Q3

REPORT INFORMATION
  Report Type: Spontaneous
  Country: US (occurrence: US)
  Receive Date: 20210716
  Receipt Date: 20210716
  Transmission Date: 20211014
  Serious: Yes (Hospitalization)
  Sender: FDA-Public Use
  Company Number: None

PATIENT
  Age: 58 Year
  Sex: Female
  Weight: 90.3 kg

DRUGS (10)
  1. LOSARTAN. [Concomitant]
     Active Substance: LOSARTAN
  2. MESALAMINE. [Suspect]
     Active Substance: MESALAMINE
  3. COLESTIPOL [Concomitant]
     Active Substance: COLESTIPOL
  4. INFLIXIMAB [Suspect]
     Active Substance: INFLIXIMAB
  5. ERGOCALCIFEROL. [Concomitant]
     Active Substance: ERGOCALCIFEROL
  6. ATORVASTATIN [Concomitant]
     Active Substance: ATORVASTATIN
  7. CLONAZEPAM. [Concomitant]
     Active Substance: CLONAZEPAM
  8. INSULIN DETEMIR [Concomitant]
     Active Substance: INSULIN DETEMIR
  9. FLUTICASONE?SALMETEROL HFA [Concomitant]
  10. MONTELUKAST [Concomitant]
     Active Substance: MONTELUKAST SODIUM

REACTIONS (9)
  - Clostridium test positive [None]
  - Sepsis [None]
  - Crohn^s disease [None]
  - Colitis [None]
  - Dyspnoea [None]
  - Cytomegalovirus test positive [None]
  - Angina unstable [None]
  - Pyrexia [None]
  - Chest discomfort [None]

NARRATIVE: CASE EVENT DATE: 20200306
